FAERS Safety Report 15464263 (Version 1)
Quarter: 2018Q4

REPORT INFORMATION
  Report Type: Other
  Country: DE (occurrence: DE)
  Receive Date: 20181004
  Receipt Date: 20181004
  Transmission Date: 20190204
  Serious: Yes (Life-Threatening, Disabling, Congenital Anomaly, Other)
  Sender: FDA-Public Use
  Company Number: DE-MACLEODS PHARMACEUTICALS US LTD-MAC2018016930

PATIENT

DRUGS (3)
  1. PROGESTERONE. [Concomitant]
     Active Substance: PROGESTERONE
     Indication: PRODUCT USED FOR UNKNOWN INDICATION
     Dosage: UNK
     Route: 065
  2. OLMESARTAN TABLET [Suspect]
     Active Substance: OLMESARTAN
     Dosage: 10 MILLIGRAM, QD, TABLET
     Route: 064
  3. BISOPROLOL [Concomitant]
     Active Substance: BISOPROLOL
     Indication: PRODUCT USED FOR UNKNOWN INDICATION
     Dosage: UNK
     Route: 065

REACTIONS (7)
  - Foetal heart rate abnormal [Unknown]
  - Foetal growth restriction [Unknown]
  - Premature baby [Unknown]
  - Umbilical hernia [Unknown]
  - Exposure during pregnancy [Recovered/Resolved]
  - Atrial septal defect [Unknown]
  - Cardiac septal defect [Unknown]
